FAERS Safety Report 6441695-0 (Version None)
Quarter: 2009Q4

REPORT INFORMATION
  Report Type: 
  Country: None (occurrence: None)
  Receive Date: 20091116
  Receipt Date: 20091110
  Transmission Date: 20100525
  Serious: Yes (Hospitalization, Disabling)
  Sender: FDA-Public Use
  Company Number: US-MERCK-0911USA00150

PATIENT
  Age: 70 Year
  Sex: Female

DRUGS (3)
  1. HYZAAR [Suspect]
     Indication: HYPERTENSION
     Route: 048
     Dates: start: 20081101, end: 20091020
  2. METOPROLOL [Concomitant]
     Route: 065
  3. AMLODIPINE [Concomitant]
     Route: 065

REACTIONS (2)
  - ARTHROPATHY [None]
  - HYPONATRAEMIA [None]
